FAERS Safety Report 6661813-9 (Version None)
Quarter: 2010Q1

REPORT INFORMATION
  Report Type: 
  Country: None (occurrence: None)
  Receive Date: 20100331
  Receipt Date: 20090715
  Transmission Date: 20100710
  Serious: Yes (Death)
  Sender: FDA-Public Use
  Company Number: US-BRISTOL-MYERS SQUIBB COMPANY-14702534

PATIENT
  Age: 64 Year
  Sex: Female
  Weight: 41 kg

DRUGS (1)
  1. ERBITUX [Suspect]
     Indication: LUNG ADENOCARCINOMA
     Dosage: RECEIVED 4 INFUSIONS 08-OCT-2008,15-OCT-2008,21-OCT-2008,29-OCT-2008
     Route: 042
     Dates: start: 20081008, end: 20081029

REACTIONS (1)
  - MALIGNANT NEOPLASM PROGRESSION [None]
